FAERS Safety Report 5824747-5 (Version None)
Quarter: 2008Q3

REPORT INFORMATION
  Report Type: 
  Country: None (occurrence: None)
  Receive Date: 20080728
  Receipt Date: 20080725
  Transmission Date: 20090109
  Serious: Yes (Death)
  Sender: FDA-Public Use
  Company Number: GB-EISAI MEDICAL RESEARCH-E2020-03137-SPO-GB

PATIENT
  Age: 77 Year
  Sex: Male
  Weight: 70 kg

DRUGS (8)
  1. ARICEPT [Suspect]
     Indication: MEMORY IMPAIRMENT
     Route: 048
     Dates: start: 20070312
  2. ASPIRIN [Concomitant]
     Indication: MYOCARDIAL ISCHAEMIA
     Route: 048
  3. ATORVASTATIN CALCIUM [Concomitant]
     Indication: MYOCARDIAL ISCHAEMIA
     Route: 048
  4. GTN-S [Concomitant]
     Indication: MYOCARDIAL ISCHAEMIA
     Route: 060
  5. ISMN (ISOSORBIDE) [Concomitant]
     Indication: MYOCARDIAL ISCHAEMIA
     Route: 048
  6. LERCANIDIPINE [Concomitant]
     Indication: MYOCARDIAL ISCHAEMIA
     Route: 048
  7. METOPROLOL TARTRATE [Concomitant]
     Indication: MYOCARDIAL ISCHAEMIA
     Route: 048
  8. TRIMIPRAMINE MALEATE [Concomitant]
     Route: 048

REACTIONS (1)
  - ACUTE MYOCARDIAL INFARCTION [None]
